FAERS Safety Report 6492231-4 (Version None)
Quarter: 2009Q4

REPORT INFORMATION
  Report Type: 
  Country: None (occurrence: None)
  Receive Date: 20091214
  Receipt Date: 20091202
  Transmission Date: 20100525
  Serious: Yes (Other)
  Sender: FDA-Public Use
  Company Number: GR-JNJFOC-20091201629

PATIENT
  Age: 57 Year

DRUGS (2)
  1. INFLIXIMAB [Suspect]
     Indication: RHEUMATOID ARTHRITIS
     Route: 042
     Dates: start: 20020101, end: 20070101
  2. METHOTREXATE [Concomitant]

REACTIONS (2)
  - DIFFUSE LARGE B-CELL LYMPHOMA STAGE III [None]
  - RHEUMATOID ARTHRITIS [None]
